FAERS Safety Report 8379308-3 (Version None)
Quarter: 2012Q2

REPORT INFORMATION
  Report Type: 
  Country: None (occurrence: None)
  Receive Date: 20120523
  Receipt Date: 20120516
  Transmission Date: 20120825
  Serious: Yes (Other)
  Sender: FDA-Public Use
  Company Number: PHHY2012BR043035

PATIENT
  Sex: Female

DRUGS (3)
  1. FORMOTEROL FUMARATE [Suspect]
     Indication: LUNG DISORDER
     Dosage: UNK UKN, QD
     Dates: start: 20111001, end: 20111101
  2. OMEPRAZOLE [Concomitant]
     Indication: GASTRITIS
     Dosage: 1 DF, AT MORNING
  3. PACO [Concomitant]
     Indication: BACK PAIN
     Dosage: 1 DF, PRN

REACTIONS (2)
  - DYSPNOEA [None]
  - ATRIOVENTRICULAR BLOCK [None]
